FAERS Safety Report 7320516-8 (Version None)
Quarter: 2011Q1

REPORT INFORMATION
  Report Type: 
  Country: None (occurrence: None)
  Receive Date: 20110215
  Receipt Date: 20110203
  Transmission Date: 20110831
  Serious: Yes (Hospitalization)
  Sender: FDA-Public Use
  Company Number: TCI2010A03683

PATIENT
  Age: 55 Year
  Sex: Male

DRUGS (7)
  1. LIPIDIL [Suspect]
     Indication: DYSLIPIDAEMIA
     Dosage: 200 MG (100 MG, 2 IN 1 D), PER ORAL
     Route: 048
     Dates: start: 20080620
  2. DIOVAN [Concomitant]
  3. ADENOCK (ALLOPURINOL) [Concomitant]
  4. CORINAEL CR (NIFEDIPINE) [Concomitant]
  5. ACTOS [Suspect]
     Indication: TYPE 2 DIABETES MELLITUS
     Dosage: 15 MG (15 MG, 1 IN 1 D), PER ORAL
     Route: 048
     Dates: start: 20091030
  6. ABEMIDE (CHLORPROPAMIDE) [Concomitant]
  7. METFORMIN HYDROCHLORIDE [Concomitant]

REACTIONS (1)
  - HYPO HDL CHOLESTEROLAEMIA [None]
